FAERS Safety Report 7919997-8 (Version None)
Quarter: 2011Q4

REPORT INFORMATION
  Report Type: 
  Country: None (occurrence: None)
  Receive Date: 20111117
  Receipt Date: 20111114
  Transmission Date: 20120403
  Serious: Yes (Death)
  Sender: FDA-Public Use
  Company Number: JP-SANOFI-AVENTIS-2011SA003726

PATIENT
  Age: 77 Year
  Sex: Female
  Weight: 58 kg

DRUGS (20)
  1. LEVOLEUCOVORIN CALCIUM [Suspect]
     Route: 041
     Dates: end: 20100330
  2. FLUOROURACIL [Suspect]
     Dosage: INFUSION
     Dates: start: 20100316, end: 20100316
  3. ORGADRONE [Concomitant]
     Indication: PREMEDICATION
     Route: 041
     Dates: start: 20100316, end: 20100330
  4. OXYCONTIN [Concomitant]
     Indication: CANCER PAIN
     Route: 048
     Dates: start: 20100309, end: 20100421
  5. FLUOROURACIL [Suspect]
     Dosage: INFUSION
     Dates: start: 20100330, end: 20100330
  6. FLUTICASONE PROPIONATE [Concomitant]
     Indication: ASTHMA
  7. OXALIPLATIN [Suspect]
     Dosage: 85 MG/M2
     Route: 041
     Dates: start: 20100316, end: 20100316
  8. FLUOROURACIL [Suspect]
     Route: 040
     Dates: start: 20100330, end: 20100330
  9. LEVOLEUCOVORIN CALCIUM [Suspect]
     Route: 041
     Dates: start: 20100316
  10. FLUOROURACIL [Suspect]
     Route: 040
     Dates: start: 20100316, end: 20100316
  11. CLOSTRIDIUM BUTYRICUM [Concomitant]
     Indication: ENTEROCOLITIS
     Route: 048
     Dates: start: 20100324, end: 20100401
  12. SCOPOLAMINE [Concomitant]
     Route: 048
     Dates: start: 20100324
  13. LOXOPROFEN SODIUM [Concomitant]
     Route: 048
     Dates: start: 20100324
  14. PROCHLORPERAZINE [Concomitant]
     Indication: NAUSEA
     Route: 048
     Dates: start: 20100324, end: 20100401
  15. OXALIPLATIN [Suspect]
     Dosage: INFUSION
     Dates: start: 20100330, end: 20100330
  16. GRANISETRON [Concomitant]
     Indication: PREMEDICATION
     Route: 041
     Dates: start: 20100316, end: 20100330
  17. ZANTAC [Concomitant]
     Indication: GASTRIC ULCER
     Route: 048
     Dates: start: 20100324, end: 20100401
  18. ANYRUME S [Concomitant]
     Route: 048
     Dates: start: 20100228
  19. NAPROXEN [Concomitant]
     Indication: PAIN
     Route: 048
     Dates: start: 20100324, end: 20100401
  20. MAGNESIUM OXIDE [Concomitant]
     Indication: CONSTIPATION
     Route: 048
     Dates: start: 20100324, end: 20100401

REACTIONS (2)
  - INTESTINAL FISTULA [None]
  - LARGE INTESTINE PERFORATION [None]
